FAERS Safety Report 9394221 (Version 1)
Quarter: 2013Q3

REPORT INFORMATION
  Report Type: Spontaneous
  Country: AR (occurrence: AR)
  Receive Date: 20130711
  Receipt Date: 20130711
  Transmission Date: 20140515
  Serious: Yes (Other)
  Sender: FDA-Public Use
  Company Number: AR-AMGEN-ARGSP2013048242

PATIENT
  Age: 34 Year
  Sex: Female

DRUGS (1)
  1. ENBREL [Suspect]
     Indication: RHEUMATOID ARTHRITIS
     Dosage: 25 MG, 2X/WEEK
     Route: 065
     Dates: start: 20100428

REACTIONS (5)
  - Gastritis erosive [Not Recovered/Not Resolved]
  - Hypersensitivity [Recovered/Resolved]
  - Irritable bowel syndrome [Recovered/Resolved]
  - Application site bruise [Recovered/Resolved]
  - Vasculitis [Recovered/Resolved]
